FAERS Safety Report 8434220-6 (Version None)
Quarter: 2012Q2

REPORT INFORMATION
  Report Type: 
  Country: None (occurrence: None)
  Receive Date: 20120613
  Receipt Date: 20120611
  Transmission Date: 20120825
  Serious: Yes (Death)
  Sender: FDA-Public Use
  Company Number: PHHY2012JP049721

PATIENT
  Age: 53 Year
  Sex: Female

DRUGS (3)
  1. ISONIAZID [Suspect]
     Indication: ATYPICAL MYCOBACTERIAL INFECTION
  2. ETHAMBUTOL HYDROCHLORIDE [Suspect]
     Indication: ATYPICAL MYCOBACTERIAL INFECTION
  3. RIFAMPICIN [Suspect]
     Indication: ATYPICAL MYCOBACTERIAL INFECTION
     Dosage: 150 MG, UNK

REACTIONS (3)
  - DISEASE PROGRESSION [None]
  - ATYPICAL MYCOBACTERIAL INFECTION [None]
  - DRUG INEFFECTIVE [None]
